FAERS Safety Report 24618583 (Version 1)
Quarter: 2024Q4

REPORT INFORMATION
  Report Type: Spontaneous
  Country: CN (occurrence: CN)
  Receive Date: 20241114
  Receipt Date: 20241114
  Transmission Date: 20250115
  Serious: Yes (Hospitalization)
  Sender: BAXTER
  Company Number: None

PATIENT
  Age: 43 Year
  Sex: Female
  Weight: 55 kg

DRUGS (4)
  1. CYCLOPHOSPHAMIDE [Suspect]
     Active Substance: CYCLOPHOSPHAMIDE
     Indication: Breast cancer female
     Dosage: 900 MG, ONCE A DAY, DILUTED WITH 50 ML OF 0.9% SODIUM CHLORIDE (LYOPHILIZED POWDE)
     Route: 041
     Dates: start: 20241018, end: 20241018
  2. SODIUM CHLORIDE [Suspect]
     Active Substance: SODIUM CHLORIDE
     Indication: Medication dilution
     Dosage: (0.9%) 50 ML, ONCE A DAY, USED TO DILUTE WITH 900 MG OF CYCLOPHOSPHAMIDE
     Route: 041
     Dates: start: 20241018, end: 20241018
  3. SODIUM CHLORIDE [Suspect]
     Active Substance: SODIUM CHLORIDE
     Dosage: (0.9%) 250 ML, ONCE A DAY, USED TO DILUTE WITH 110 MG OF DOCETAXEL
     Route: 041
     Dates: start: 20241018, end: 20241018
  4. DOCETAXEL [Suspect]
     Active Substance: DOCETAXEL
     Indication: Breast cancer female
     Dosage: 110 MG, ONCE A DAY, DILUTED WITH 250 ML OF 0.9% SODIUM CHLORIDE
     Route: 041
     Dates: start: 20241018, end: 20241018

REACTIONS (1)
  - Hepatic function abnormal [Unknown]

NARRATIVE: CASE EVENT DATE: 20241105
